FAERS Safety Report 5196379-6 (Version None)
Quarter: 2006Q4

REPORT INFORMATION
  Report Type: 
  Country: None (occurrence: None)
  Receive Date: 20061222
  Receipt Date: 20061215
  Transmission Date: 20070319
  Serious: Yes (Death)
  Sender: FDA-Public Use
  Company Number: 234006

PATIENT
  Age: 72 Year
  Sex: Female

DRUGS (4)
  1. METALYSE [Suspect]
     Indication: MYOCARDIAL INFARCTION
     Dosage: UNK, SINGLE, INTRAVENOUS
     Route: 042
     Dates: start: 20061127, end: 20061127
  2. NITROGLYCERIN [Concomitant]
  3. MORPHINE [Concomitant]
  4. METOPROLOL TARTRATE [Concomitant]

REACTIONS (1)
  - CEREBRAL HAEMORRHAGE [None]
